FAERS Safety Report 14019112 (Version 3)
Quarter: 2022Q1

REPORT INFORMATION
  Report Type: Spontaneous
  Country: US (occurrence: US)
  Receive Date: 20170928
  Receipt Date: 20220208
  Transmission Date: 20220423
  Serious: Yes (Other)
  Sender: FDA-Public Use
  Company Number: US-MLMSERVICE-20170908-0878252-1

PATIENT
  Age: 71 Year
  Sex: Male

DRUGS (16)
  1. PREDNISONE [Suspect]
     Active Substance: PREDNISONE
     Indication: Immunosuppressant drug therapy
     Dosage: UNK
     Route: 065
  2. METHYLPREDNISOLONE [Suspect]
     Active Substance: METHYLPREDNISOLONE
     Indication: Immunosuppressant drug therapy
     Dosage: UNK
     Route: 065
  3. MYCOPHENOLATE MOFETIL [Suspect]
     Active Substance: MYCOPHENOLATE MOFETIL
     Indication: Immunosuppressant drug therapy
     Dosage: TROUGH GOAL 8E10 NG/ML
     Route: 065
  4. TACROLIMUS [Suspect]
     Active Substance: TACROLIMUS
     Indication: Immunosuppressant drug therapy
     Dosage: MORNING
     Route: 065
  5. TACROLIMUS [Suspect]
     Active Substance: TACROLIMUS
     Dosage: EVENING
     Route: 065
  6. TACROLIMUS [Suspect]
     Active Substance: TACROLIMUS
     Dosage: MORNING
     Route: 065
  7. TACROLIMUS [Suspect]
     Active Substance: TACROLIMUS
     Dosage: EVENING
     Route: 065
  8. TACROLIMUS [Suspect]
     Active Substance: TACROLIMUS
     Dosage: MORNING
     Route: 065
  9. TACROLIMUS [Suspect]
     Active Substance: TACROLIMUS
     Dosage: (EVEINING
     Route: 065
  10. TACROLIMUS [Suspect]
     Active Substance: TACROLIMUS
     Dosage: 2 MILLIGRAM, QD (EVEINING)
     Route: 065
  11. TACROLIMUS [Suspect]
     Active Substance: TACROLIMUS
     Dosage: 4 MILLIGRAM, QD (MORNING)
     Route: 065
  12. AZATHIOPRINE [Suspect]
     Active Substance: AZATHIOPRINE
     Indication: Granulomatosis with polyangiitis
     Dosage: UNK
     Route: 065
  13. THYMOCYTE IMMUNE GLOBULIN NOS [Concomitant]
     Active Substance: THYMOCYTE IMMUNE GLOBULIN NOS
     Indication: Product used for unknown indication
     Dosage: 2 DOSES
     Route: 065
  14. SULFAMETHOXAZOLE\TRIMETHOPRIM [Concomitant]
     Active Substance: SULFAMETHOXAZOLE\TRIMETHOPRIM
     Indication: Infection prophylaxis
     Dosage: UNK
     Route: 065
  15. VALGANCICLOVIR [Concomitant]
     Active Substance: VALGANCICLOVIR
     Indication: Infection prophylaxis
     Dosage: 900 MG, DAILY
     Route: 065
  16. VALGANCICLOVIR [Concomitant]
     Active Substance: VALGANCICLOVIR
     Dosage: 450 MG, DAILY
     Route: 065

REACTIONS (1)
  - Cytomegalovirus viraemia [Recovering/Resolving]
